FAERS Safety Report 9349921 (Version 1)
Quarter: 2013Q2

REPORT INFORMATION
  Report Type: Spontaneous
  Country: US (occurrence: US)
  Receive Date: 20130614
  Receipt Date: 20130614
  Transmission Date: 20140414
  Serious: Yes (Other)
  Sender: FDA-Public Use
  Company Number: CHPA2013US009801

PATIENT
  Age: 55 Year
  Sex: Male

DRUGS (1)
  1. EX-LAX REG STR LAX PILLS SENNA [Suspect]
     Indication: CONSTIPATION
     Dosage: 2 DF, PRN
     Route: 048

REACTIONS (3)
  - Dehydration [Recovered/Resolved]
  - Back pain [Recovered/Resolved]
  - Constipation [Recovered/Resolved]
